FAERS Safety Report 9295865 (Version 3)
Quarter: 2014Q1

REPORT INFORMATION
  Report Type: Spontaneous
  Country: AU (occurrence: AU)
  Receive Date: 20130517
  Receipt Date: 20140131
  Transmission Date: 20141002
  Serious: Yes (Life-Threatening)
  Sender: FDA-Public Use
  Company Number: AU-ASTRAZENECA-2013SE33671

PATIENT
  Age: 41 Year
  Sex: Male

DRUGS (5)
  1. QUETIAPINE [Suspect]
     Route: 048
  2. CARBAMAZEPINE [Suspect]
     Route: 048
  3. SODIUM VALPROATE [Suspect]
     Route: 048
  4. FLUOXETINE [Suspect]
     Route: 048
  5. OXAZEPAM [Suspect]
     Route: 048

REACTIONS (5)
  - Overdose [Unknown]
  - Electrocardiogram QT prolonged [Unknown]
  - Shock [Unknown]
  - Coma [Unknown]
  - Metabolic acidosis [Unknown]
